FAERS Safety Report 7767520-3 (Version None)
Quarter: 2011Q3

REPORT INFORMATION
  Report Type: 
  Country: None (occurrence: None)
  Receive Date: 20110922
  Receipt Date: 20110914
  Transmission Date: 20111222
  Serious: Yes (Other)
  Sender: FDA-Public Use
  Company Number: US-JNJFOC-20110711591

PATIENT
  Sex: Female

DRUGS (1)
  1. DOXORUBICIN HCL [Suspect]
     Indication: OVARIAN CANCER
     Route: 042
     Dates: start: 20110201

REACTIONS (10)
  - HEART VALVE INCOMPETENCE [None]
  - BLOOD UREA INCREASED [None]
  - INFUSION RELATED REACTION [None]
  - ASTHENIA [None]
  - PRODUCTIVE COUGH [None]
  - BLOOD CREATININE INCREASED [None]
  - BLOOD ALKALINE PHOSPHATASE INCREASED [None]
  - BLOOD ALBUMIN DECREASED [None]
  - JOINT SWELLING [None]
  - NAUSEA [None]
